FAERS Safety Report 18659403 (Version 1)
Quarter: 2020Q4

REPORT INFORMATION
  Report Type: Other
  Country: US (occurrence: US)
  Receive Date: 20201224
  Receipt Date: 20201224
  Transmission Date: 20210114
  Serious: Yes (Other)
  Sender: FDA-Public Use
  Company Number: US-ROCHE-2735086

PATIENT
  Age: 61 Year
  Sex: Male

DRUGS (5)
  1. COBIMETINIB. [Suspect]
     Active Substance: COBIMETINIB
     Indication: SMALL INTESTINE ADENOCARCINOMA
     Dosage: ADMINISTERED DAILY FOR 21 DAYS IN A 28-DAY CYCLE
     Route: 048
  2. NIVOLUMAB [Suspect]
     Active Substance: NIVOLUMAB
     Indication: SMALL INTESTINE ADENOCARCINOMA
     Route: 042
  3. HYDROXYCHLOROQUINE [Suspect]
     Active Substance: HYDROXYCHLOROQUINE
     Route: 048
  4. HYDROXYCHLOROQUINE [Suspect]
     Active Substance: HYDROXYCHLOROQUINE
     Dosage: ON DAY 15 OF CYCLE ONE, HYDROXYCHLOROQUINE WAS INCREASED TO 600 MG TWICE DAILY.
     Route: 048
  5. HYDROXYCHLOROQUINE [Suspect]
     Active Substance: HYDROXYCHLOROQUINE
     Indication: SMALL INTESTINE ADENOCARCINOMA
     Route: 048

REACTIONS (5)
  - Diarrhoea [Unknown]
  - Intentional product use issue [Unknown]
  - Rash [Recovering/Resolving]
  - Off label use [Unknown]
  - Fatigue [Unknown]
